FAERS Safety Report 6035015-3 (Version None)
Quarter: 2009Q1

REPORT INFORMATION
  Report Type: 
  Country: None (occurrence: None)
  Receive Date: 20090112
  Receipt Date: 20090106
  Transmission Date: 20090719
  Serious: Yes (Other)
  Sender: FDA-Public Use
  Company Number: GB-TEVA-182378ISR

PATIENT
  Age: 60 Year
  Sex: Female

DRUGS (2)
  1. BACLOFEN [Suspect]
     Indication: MULTIPLE SCLEROSIS
     Route: 048
  2. CARBAMAZEPINE [Suspect]
     Route: 048

REACTIONS (2)
  - DYSPHAGIA [None]
  - PNEUMONIA [None]
